FAERS Safety Report 22072772 (Version 1)
Quarter: 2023Q1

REPORT INFORMATION
  Report Type: Spontaneous
  Country: US (occurrence: US)
  Receive Date: 20230308
  Receipt Date: 20230308
  Transmission Date: 20230418
  Serious: No
  Sender: FDA-Public Use
  Company Number: US-GLENMARK PHARMACEUTICALS-2022GMK074411

PATIENT

DRUGS (1)
  1. ZONISAMIDE [Suspect]
     Active Substance: ZONISAMIDE
     Indication: Product used for unknown indication
     Dosage: UNK
     Route: 065

REACTIONS (7)
  - Gastric disorder [Unknown]
  - Sensory disturbance [Unknown]
  - Recalled product administered [Unknown]
  - Pollakiuria [Unknown]
  - Depression [Unknown]
  - Irritability [Unknown]
  - Diarrhoea [Unknown]
